FAERS Safety Report 21984373 (Version 1)
Quarter: 2023Q1

REPORT INFORMATION
  Report Type: Spontaneous
  Country: US (occurrence: None)
  Receive Date: 20230209
  Receipt Date: 20230209
  Transmission Date: 20230417
  Serious: Yes (unspecified)
  Sender: FDA-Public Use
  Company Number: None

PATIENT
  Age: 69 Year
  Sex: Female

DRUGS (6)
  1. RYDAPT [Suspect]
     Active Substance: MIDOSTAURIN
     Indication: Leukaemia
     Dosage: 25 MG QD BY MOUTH
     Route: 048
     Dates: start: 202301
  2. FOLIC ACID [Concomitant]
     Active Substance: FOLIC ACID
  3. METOPROLOL [Concomitant]
     Active Substance: METOPROLOL
  4. VITAMIN B [Concomitant]
     Active Substance: VITAMIN B
  5. POLYETHYLENE GLYCOL [Concomitant]
     Active Substance: POLYETHYLENE GLYCOL
  6. EZALLOR [Concomitant]
     Active Substance: ROSUVASTATIN

REACTIONS (2)
  - Gastrooesophageal reflux disease [None]
  - Condition aggravated [None]

NARRATIVE: CASE EVENT DATE: 20230101
